FAERS Safety Report 14187429 (Version 1)
Quarter: 2017Q4

REPORT INFORMATION
  Report Type: Spontaneous
  Country: US (occurrence: US)
  Receive Date: 20171113
  Receipt Date: 20171113
  Transmission Date: 20180321
  Serious: No
  Sender: FDA-Public Use
  Company Number: None

PATIENT
  Sex: Male
  Weight: 81 kg

DRUGS (8)
  1. INVOKANA [Suspect]
     Active Substance: CANAGLIFLOZIN
     Indication: TYPE 2 DIABETES MELLITUS
     Dosage: ?          QUANTITY:1 TABLET(S);?
     Route: 048
     Dates: start: 20160101, end: 20160310
  2. INVOKANA [Concomitant]
     Active Substance: CANAGLIFLOZIN
  3. METFORMIN [Concomitant]
     Active Substance: METFORMIN HYDROCHLORIDE
  4. ENALAPRIL [Concomitant]
     Active Substance: ENALAPRIL
  5. ZYRTEC [Concomitant]
     Active Substance: CETIRIZINE HYDROCHLORIDE
  6. SIMVASTIN [Concomitant]
     Active Substance: SIMVASTATIN
  7. ASPIRIN. [Concomitant]
     Active Substance: ASPIRIN
  8. MULTIVITAMIN [Concomitant]
     Active Substance: VITAMINS

REACTIONS (2)
  - Abdominal discomfort [None]
  - Flatulence [None]

NARRATIVE: CASE EVENT DATE: 20160301
